FAERS Safety Report 9820482 (Version 1)
Quarter: 2014Q1

REPORT INFORMATION
  Report Type: Spontaneous
  Country: IT (occurrence: IT)
  Receive Date: 20140116
  Receipt Date: 20140116
  Transmission Date: 20141002
  Serious: Yes (Hospitalization)
  Sender: FDA-Public Use
  Company Number: IT-BAYER-2014-006353

PATIENT
  Age: 80 Year
  Sex: Female

DRUGS (4)
  1. CARDIOASPIRIN [Suspect]
     Indication: THROMBOSIS PROPHYLAXIS
     Dosage: DAILY DOSE 1 DF
     Route: 048
     Dates: start: 20130101, end: 20131205
  2. LABETALOL [Concomitant]
     Dosage: UNK
     Route: 048
  3. TRITTICO [Concomitant]
     Dosage: UNK
     Route: 048
  4. EUTIROX [Concomitant]
     Dosage: UNK
     Route: 048

REACTIONS (2)
  - Mallory-Weiss syndrome [Unknown]
  - Haematemesis [Unknown]
